FAERS Safety Report 5052184-2 (Version None)
Quarter: 2006Q3

REPORT INFORMATION
  Report Type: 
  Country: None (occurrence: None)
  Receive Date: 20060714
  Receipt Date: 20060714
  Transmission Date: 20061208
  Serious: Yes (Disabling)
  Sender: FDA-Public Use
  Company Number: None

PATIENT
  Age: 37 Year
  Sex: Female
  Weight: 80.9 kg

DRUGS (2)
  1. NAPROXEN SODIUM [Suspect]
     Indication: CAESAREAN SECTION
     Dates: start: 20060712, end: 20060712
  2. NAPROXEN SODIUM [Suspect]
     Indication: PROCEDURAL PAIN
     Dates: start: 20060712, end: 20060712

REACTIONS (2)
  - DRUG HYPERSENSITIVITY [None]
  - PRURITUS GENERALISED [None]
